FAERS Safety Report 4784004-5 (Version None)
Quarter: 2005Q3

REPORT INFORMATION
  Report Type: 
  Country: None (occurrence: None)
  Receive Date: 20050927
  Receipt Date: 20050608
  Transmission Date: 20060218
  Serious: No
  Sender: FDA-Public Use
  Company Number: SP00451

PATIENT
  Age: 18 Year
  Sex: Male

DRUGS (2)
  1. XIFAXAN [Suspect]
     Indication: CROHN'S DISEASE
     Dosage: 400MG/BID, ORAL
     Route: 048
     Dates: start: 20050531
  2. XIFAXAN [Suspect]
     Indication: IRRITABLE BOWEL SYNDROME
     Dosage: 400MG/BID, ORAL
     Route: 048
     Dates: start: 20050531

REACTIONS (1)
  - RASH PUSTULAR [None]
